FAERS Safety Report 17946238 (Version 3)
Quarter: 2020Q3

REPORT INFORMATION
  Report Type: Spontaneous
  Country: US (occurrence: US)
  Receive Date: 20200626
  Receipt Date: 20200928
  Transmission Date: 20201103
  Serious: Yes (Other)
  Sender: FDA-Public Use
  Company Number: US-GILEAD-2020-0476455

PATIENT
  Age: 42 Year
  Sex: Male
  Weight: 57.14 kg

DRUGS (41)
  1. BACTRIM [Concomitant]
     Active Substance: SULFAMETHOXAZOLE\TRIMETHOPRIM
  2. DIURIL [CHLOROTHIAZIDE SODIUM] [Concomitant]
  3. DORAFEM [Concomitant]
     Active Substance: DOMPERIDONE\RABEPRAZOLE
  4. CORTISONE [Concomitant]
     Active Substance: CORTISONE
  5. ESOMEPRAZOLE. [Concomitant]
     Active Substance: ESOMEPRAZOLE MAGNESIUM
  6. APTIVUS [Concomitant]
     Active Substance: TIPRANAVIR
  7. TRUVADA [Suspect]
     Active Substance: EMTRICITABINE\TENOFOVIR DISOPROXIL FUMARATE
     Indication: HIV INFECTION
     Dosage: UNK
     Route: 048
     Dates: start: 201203, end: 2017
  8. GANCICLOVIR. [Concomitant]
     Active Substance: GANCICLOVIR
  9. LASIX [Concomitant]
     Active Substance: FUROSEMIDE
  10. LOVENOX [LEVOFLOXACIN] [Concomitant]
     Active Substance: LEVOFLOXACIN
  11. AMPICILLIN [Concomitant]
     Active Substance: AMPICILLIN
  12. DEXLANSOPRAZOLE [Concomitant]
     Active Substance: DEXLANSOPRAZOLE
  13. EDECRIN [ETACRYNATE SODIUM] [Concomitant]
  14. FLEET LAXATIVE [Concomitant]
  15. HEPARIN [Concomitant]
     Active Substance: HEPARIN SODIUM
  16. PENICILLIN [PENICILLIN NOS] [Concomitant]
     Active Substance: PENICILLIN
  17. TACROLIMUS. [Concomitant]
     Active Substance: TACROLIMUS
  18. TETRACYCLINE [Concomitant]
     Active Substance: TETRACYCLINE
  19. TRIAMCINOLONE [Concomitant]
     Active Substance: TRIAMCINOLONE
  20. ACETAMINOPHEN. [Concomitant]
     Active Substance: ACETAMINOPHEN
  21. ALENDRONATE [Concomitant]
     Active Substance: ALENDRONATE SODIUM
  22. AMOXICILLIN. [Concomitant]
     Active Substance: AMOXICILLIN
  23. CRESTOR [Concomitant]
     Active Substance: ROSUVASTATIN CALCIUM
  24. DEMADEX [Concomitant]
     Active Substance: TORSEMIDE
  25. GLYBURIDE. [Concomitant]
     Active Substance: GLYBURIDE
  26. INDINAVIR [Concomitant]
     Active Substance: INDINAVIR
  27. SIMVASTATIN. [Concomitant]
     Active Substance: SIMVASTATIN
  28. WARFARIN [Concomitant]
     Active Substance: WARFARIN
  29. CELEBREX [Concomitant]
     Active Substance: CELECOXIB
  30. MEDROXYPROGESTERONE ACETATE. [Concomitant]
     Active Substance: MEDROXYPROGESTERONE ACETATE
  31. LEVOTHYROXINE. [Concomitant]
     Active Substance: LEVOTHYROXINE
  32. PRAVASTATIN. [Concomitant]
     Active Substance: PRAVASTATIN
  33. VANCOMYCIN [Concomitant]
     Active Substance: VANCOMYCIN
  34. VIREAD [Suspect]
     Active Substance: TENOFOVIR DISOPROXIL FUMARATE
     Indication: HIV INFECTION
     Dosage: UNK
     Route: 048
     Dates: start: 200110, end: 201202
  35. BUMEX [Concomitant]
     Active Substance: BUMETANIDE
  36. DYAZIDE [Concomitant]
     Active Substance: HYDROCHLOROTHIAZIDE\TRIAMTERENE
  37. METHOTREXATE. [Concomitant]
     Active Substance: METHOTREXATE
  38. DEPAKOTE [Concomitant]
     Active Substance: DIVALPROEX SODIUM
  39. DIAMOX SEQUELS [Concomitant]
     Active Substance: ACETAZOLAMIDE
  40. FLOMAX [Concomitant]
     Active Substance: TAMSULOSIN HYDROCHLORIDE
  41. PREDNISOLONE. [Concomitant]
     Active Substance: PREDNISOLONE

REACTIONS (11)
  - Pathological fracture [Unknown]
  - Osteonecrosis [Unknown]
  - Osteomalacia [Recovered/Resolved]
  - Bone density decreased [Unknown]
  - Depression [Not Recovered/Not Resolved]
  - Spinal fracture [Not Recovered/Not Resolved]
  - Chronic kidney disease [Not Recovered/Not Resolved]
  - Fanconi syndrome acquired [Unknown]
  - Rib fracture [Recovered/Resolved]
  - Bone loss [Not Recovered/Not Resolved]
  - Osteoporosis [Not Recovered/Not Resolved]

NARRATIVE: CASE EVENT DATE: 20080807
